FAERS Safety Report 4815731-9 (Version None)
Quarter: 2005Q4

REPORT INFORMATION
  Report Type: 
  Country: None (occurrence: None)
  Receive Date: 20051031
  Receipt Date: 20050715
  Transmission Date: 20060501
  Serious: Yes (Hospitalization, Other)
  Sender: FDA-Public Use
  Company Number: 2005SE04146

PATIENT
  Age: 27178 Day
  Sex: Male
  Weight: 65 kg

DRUGS (8)
  1. BLOPRESS [Suspect]
     Indication: HYPERTENSION
     Route: 048
     Dates: start: 20030612, end: 20031009
  2. BLOPRESS [Suspect]
     Route: 048
     Dates: start: 20031010
  3. ACTOS [Concomitant]
     Indication: DIABETES MELLITUS NON-INSULIN-DEPENDENT
     Route: 048
     Dates: start: 20040428, end: 20050306
  4. NORVASC [Concomitant]
     Indication: HYPERTENSION
     Route: 048
     Dates: start: 20020402, end: 20040929
  5. LIPANTIL [Concomitant]
     Indication: HYPERLIPIDAEMIA
     Route: 048
     Dates: start: 20020402, end: 20040427
  6. DICHLOTRIDE [Concomitant]
     Indication: HYPERTENSION
     Route: 048
     Dates: start: 20020402, end: 20031009
  7. AMARYL [Concomitant]
     Indication: DIABETES MELLITUS NON-INSULIN-DEPENDENT
     Route: 048
     Dates: start: 20020402, end: 20040314
  8. ALDACTONE [Concomitant]
     Indication: HYPERTENSION
     Route: 048
     Dates: start: 20040330, end: 20040906

REACTIONS (6)
  - ANAEMIA [None]
  - CORONARY ARTERY DISEASE [None]
  - GENERAL PHYSICAL HEALTH DETERIORATION [None]
  - HAEMORRHOIDAL HAEMORRHAGE [None]
  - HYPERURICAEMIA [None]
  - SUPRAVENTRICULAR TACHYCARDIA [None]
